FAERS Safety Report 4433163-2 (Version None)
Quarter: 2004Q3

REPORT INFORMATION
  Report Type: 
  Country: None (occurrence: None)
  Receive Date: 20040823
  Receipt Date: 20040810
  Transmission Date: 20050211
  Serious: Yes (Other)
  Sender: FDA-Public Use
  Company Number: 2004054836

PATIENT
  Age: 34 Year
  Sex: Male

DRUGS (7)
  1. NEURONTIN [Suspect]
     Indication: PARANOIA
     Dates: start: 20020101, end: 20020101
  2. NEURONTIN [Suspect]
     Indication: SCHIZOPHRENIA
     Dates: start: 20020101, end: 20020101
  3. GEODON [Suspect]
     Indication: ILL-DEFINED DISORDER
     Dosage: 40 MG
     Dates: start: 20020101
  4. RISPERDAL [Suspect]
     Indication: ILL-DEFINED DISORDER
  5. ACETAMINOPHEN [Suspect]
     Indication: ILL-DEFINED DISORDER
  6. OLANZAPINE [Suspect]
     Indication: ILL-DEFINED DISORDER
  7. ARIPIPRAZOLE (ARIPIPRAZOLE) [Suspect]
     Indication: ILL-DEFINED DISORDER

REACTIONS (7)
  - ASTHMA [None]
  - CONDITION AGGRAVATED [None]
  - FATIGUE [None]
  - PAIN IN JAW [None]
  - SEXUAL DYSFUNCTION [None]
  - SOMNOLENCE [None]
  - VISION BLURRED [None]
